FAERS Safety Report 4547663-8 (Version None)
Quarter: 2005Q1

REPORT INFORMATION
  Report Type: 
  Country: None (occurrence: None)
  Receive Date: 20050107
  Receipt Date: 20041228
  Transmission Date: 20050727
  Serious: Yes (Hospitalization)
  Sender: FDA-Public Use
  Company Number: MY-ABBOTT-05P-101-0285305-00

PATIENT
  Sex: Male
  Weight: 70 kg

DRUGS (1)
  1. GENGRAF [Suspect]
     Indication: DRUG USE FOR UNKNOWN INDICATION

REACTIONS (4)
  - ENTEROCOCCAL INFECTION [None]
  - KLEBSIELLA INFECTION [None]
  - URINARY RETENTION [None]
  - URINARY TRACT INFECTION [None]
